FAERS Safety Report 7599444-9 (Version None)
Quarter: 2011Q3

REPORT INFORMATION
  Report Type: 
  Country: None (occurrence: None)
  Receive Date: 20110711
  Receipt Date: 20110511
  Transmission Date: 20111222
  Serious: Yes (Death, Life-Threatening, Hospitalization)
  Sender: FDA-Public Use
  Company Number: FR-BAYER-2010-002662

PATIENT
  Age: 73 Year
  Sex: Male

DRUGS (5)
  1. VENTOLIN [Concomitant]
     Indication: OBSTRUCTIVE AIRWAYS DISORDER
  2. PREDNISOLONE [Concomitant]
     Indication: OBSTRUCTIVE AIRWAYS DISORDER
  3. ULTRAVIST 150 [Suspect]
     Indication: ANGIOGRAM
     Dosage: 100 ML, ONCE
     Route: 042
     Dates: start: 20101130, end: 20101130
  4. PLAVIX [Concomitant]
  5. STATIN [Concomitant]

REACTIONS (9)
  - ANAPHYLACTIC SHOCK [None]
  - LOCALISED OEDEMA [None]
  - ERYTHEMA [None]
  - CEREBRAL ISCHAEMIA [None]
  - CARDIO-RESPIRATORY ARREST [None]
  - PRURITUS [None]
  - ANGIOEDEMA [None]
  - LARYNGEAL OEDEMA [None]
  - LOSS OF CONSCIOUSNESS [None]
